FAERS Safety Report 23031561 (Version 1)
Quarter: 2023Q4

REPORT INFORMATION
  Report Type: Spontaneous
  Country: TR (occurrence: TR)
  Receive Date: 20231005
  Receipt Date: 20231005
  Transmission Date: 20240110
  Serious: Yes (Hospitalization, Other)
  Sender: FDA-Public Use
  Company Number: TR-GLAXOSMITHKLINE-TR2023GSK135564

PATIENT

DRUGS (1)
  1. BUPROPION HYDROCHLORIDE [Suspect]
     Active Substance: BUPROPION HYDROCHLORIDE
     Indication: Product used for unknown indication
     Dosage: APPROXIMATELY 600 MG/DAY

REACTIONS (12)
  - Psychotic disorder [Recovered/Resolved]
  - Overdose [Unknown]
  - Lack of spontaneous speech [Recovered/Resolved]
  - Blunted affect [Recovered/Resolved]
  - Persecutory delusion [Recovered/Resolved]
  - Hallucination, auditory [Recovered/Resolved]
  - Judgement impaired [Recovered/Resolved]
  - Anosognosia [Recovered/Resolved]
  - Initial insomnia [Recovered/Resolved]
  - Soliloquy [Recovered/Resolved]
  - Euphoric mood [Recovered/Resolved]
  - Abnormal behaviour [Recovered/Resolved]
